FAERS Safety Report 22124317 (Version 1)
Quarter: 2023Q1

REPORT INFORMATION
  Report Type: Spontaneous
  Country: US (occurrence: US)
  Receive Date: 20230322
  Receipt Date: 20230322
  Transmission Date: 20230418
  Serious: No
  Sender: FDA-Public Use
  Company Number: US-ABBVIE-4318090

PATIENT
  Age: 57 Year
  Sex: Female
  Weight: 116 kg

DRUGS (19)
  1. HUMIRA [Suspect]
     Active Substance: ADALIMUMAB
     Indication: Eczema
     Dosage: FORM STRENGTH 40 MILLIGRAM
     Route: 058
     Dates: start: 202207
  2. HUMIRA [Suspect]
     Active Substance: ADALIMUMAB
     Indication: Hidradenitis
  3. HUMIRA [Suspect]
     Active Substance: ADALIMUMAB
     Indication: Rheumatoid arthritis
  4. TIZANIDINE [Concomitant]
     Active Substance: TIZANIDINE
     Indication: Pain
  5. METHOTREXATE [Concomitant]
     Active Substance: METHOTREXATE
     Indication: Product used for unknown indication
     Dates: start: 2022
  6. CYANOCOBALAMIN [Concomitant]
     Active Substance: CYANOCOBALAMIN
     Indication: Product used for unknown indication
  7. METOPROLOL [Concomitant]
     Active Substance: METOPROLOL
     Indication: Product used for unknown indication
  8. NEOSPORIN [Concomitant]
     Active Substance: BACITRACIN ZINC\NEOMYCIN SULFATE\POLYMYXIN B SULFATE
     Indication: Product used for unknown indication
  9. SULINDAC [Concomitant]
     Active Substance: SULINDAC
     Indication: Back pain
  10. TOPIRAMATE [Concomitant]
     Active Substance: TOPIRAMATE
     Indication: Product used for unknown indication
  11. POTASSIUM CHLORIDE [Concomitant]
     Active Substance: POTASSIUM CHLORIDE
     Indication: Product used for unknown indication
  12. AMITRIPTYLINE [Concomitant]
     Active Substance: AMITRIPTYLINE
     Indication: Product used for unknown indication
  13. FOLIC ACID [Concomitant]
     Active Substance: FOLIC ACID
     Indication: Product used for unknown indication
  14. GABAPENTIN [Concomitant]
     Active Substance: GABAPENTIN
     Indication: Product used for unknown indication
  15. CLOPIDOGREL [Concomitant]
     Active Substance: CLOPIDOGREL BISULFATE
     Indication: Product used for unknown indication
  16. ASPIRIN [Concomitant]
     Active Substance: ASPIRIN
     Indication: Product used for unknown indication
  17. LOSARTAN [Concomitant]
     Active Substance: LOSARTAN
     Indication: Product used for unknown indication
  18. VITAMIN D [Concomitant]
     Active Substance: VITAMIN D NOS
     Indication: Product used for unknown indication
  19. FUROSEMIDE [Concomitant]
     Active Substance: FUROSEMIDE
     Indication: Product used for unknown indication

REACTIONS (3)
  - Injection site haemorrhage [Recovered/Resolved]
  - Off label use [Unknown]
  - Device use error [Not Recovered/Not Resolved]

NARRATIVE: CASE EVENT DATE: 20230223
